FAERS Safety Report 4431928-4 (Version None)
Quarter: 2004Q3

REPORT INFORMATION
  Report Type: 
  Country: None (occurrence: None)
  Receive Date: 20040818
  Receipt Date: 20040806
  Transmission Date: 20050211
  Serious: Yes (Hospitalization)
  Sender: FDA-Public Use
  Company Number: 230154M04USA

PATIENT
  Age: 55 Year
  Sex: Female

DRUGS (6)
  1. REBIF [Suspect]
     Indication: MULTIPLE SCLEROSIS
     Dosage: 44 MCG, 3 IN 1 WEEKS, NOT REPORTED
  2. PLAVIX [Concomitant]
  3. NEXIUM [Concomitant]
  4. VITAMINS (VITAMINS) [Concomitant]
  5. SYNTHROID [Concomitant]
  6. REGLAN [Concomitant]

REACTIONS (4)
  - DECUBITUS ULCER [None]
  - INFECTED SKIN ULCER [None]
  - INFLUENZA LIKE ILLNESS [None]
  - PYREXIA [None]
